FAERS Safety Report 8761183 (Version 3)
Quarter: 2013Q1

REPORT INFORMATION
  Report Type: Spontaneous
  Country: FR (occurrence: FR)
  Receive Date: 20120830
  Receipt Date: 20130312
  Transmission Date: 20140127
  Serious: Yes (Death, Hospitalization, Other)
  Sender: FDA-Public Use
  Company Number: FR-ABBOTT-12P-056-0973203-00

PATIENT
  Age: 39 None
  Sex: Female

DRUGS (10)
  1. NORVIR [Suspect]
     Indication: HIV INFECTION
     Route: 048
     Dates: start: 20120113, end: 20120802
  2. TRUVADA [Suspect]
     Indication: HIV INFECTION
     Route: 048
     Dates: start: 20120113, end: 20120802
  3. PREZISTA [Suspect]
     Indication: HIV INFECTION
     Route: 048
     Dates: start: 20120113, end: 20120802
  4. INTELENCE [Suspect]
     Indication: HIV INFECTION
     Route: 048
     Dates: start: 20120113, end: 20120802
  5. INTERLEUKINS [Suspect]
     Indication: PROGRESSIVE MULTIFOCAL LEUKOENCEPHALOPATHY
     Route: 058
     Dates: start: 20120621, end: 20120705
  6. COUMADIN [Concomitant]
     Indication: PRODUCT USED FOR UNKNOWN INDICATION
     Dosage: AT BEDTIME
  7. CRESTOR [Concomitant]
     Indication: PRODUCT USED FOR UNKNOWN INDICATION
  8. WELLVONE [Concomitant]
     Indication: PRODUCT USED FOR UNKNOWN INDICATION
  9. ODRIK [Concomitant]
     Indication: PRODUCT USED FOR UNKNOWN INDICATION
  10. DIFFU K [Concomitant]
     Indication: PRODUCT USED FOR UNKNOWN INDICATION
     Dosage: 3 DOSAGE FORMS

REACTIONS (11)
  - Progressive multifocal leukoencephalopathy [Fatal]
  - Immune reconstitution inflammatory syndrome [Fatal]
  - Condition aggravated [Fatal]
  - Dizziness [Unknown]
  - Nystagmus [Unknown]
  - Eyelid ptosis [Unknown]
  - Nephropathy [Unknown]
  - Nephritic syndrome [Unknown]
  - Ovarian vein thrombosis [Unknown]
  - Nervous system disorder [Unknown]
  - Vena cava thrombosis [Unknown]
